FAERS Safety Report 5319621-7 (Version None)
Quarter: 2007Q2

REPORT INFORMATION
  Report Type: 
  Country: None (occurrence: None)
  Receive Date: 20070503
  Receipt Date: 20070423
  Transmission Date: 20071010
  Serious: Yes (Hospitalization)
  Sender: FDA-Public Use
  Company Number: 2007RR-06583

PATIENT
  Age: 49 Year
  Sex: Female

DRUGS (4)
  1. PARACETAMOL FAMILY (ACETAMINOPHEN/PARACETAMOL) TABLET, 500MG [Suspect]
     Dosage: 10000 MG, ORAL
     Route: 048
  2. CO-PROXAMOL (CO-PROXAMOL) TABLET [Suspect]
     Dosage: 6 DF, ORAL
     Route: 048
  3. RISPERIDONE [Suspect]
  4. SERTRALINE [Suspect]

REACTIONS (8)
  - BRAIN OEDEMA [None]
  - CSF GLUCOSE DECREASED [None]
  - HAEMODIALYSIS [None]
  - HEPATIC ENCEPHALOPATHY [None]
  - LABORATORY TEST ABNORMAL [None]
  - MULTIPLE DRUG OVERDOSE INTENTIONAL [None]
  - PULMONARY OEDEMA [None]
  - URINE OUTPUT DECREASED [None]
